FAERS Safety Report 9547630 (Version 1)
Quarter: 2013Q3

REPORT INFORMATION
  Report Type: Spontaneous
  Country: US (occurrence: None)
  Receive Date: 20130923
  Receipt Date: 20130923
  Transmission Date: 20140515
  Serious: No
  Sender: FDA-Public Use
  Company Number: None

PATIENT
  Age: 40 Year
  Sex: Female
  Weight: 78.93 kg

DRUGS (1)
  1. ACZONE 5% GEL, ALLERGAN [Suspect]
     Indication: ACNE
     Dates: start: 20130809

REACTIONS (1)
  - Rash [None]
